FAERS Safety Report 5206226-1 (Version None)
Quarter: 2006Q4

REPORT INFORMATION
  Report Type: 
  Country: None (occurrence: None)
  Receive Date: 20061026
  Receipt Date: 20060926
  Transmission Date: 20070319
  Serious: No
  Sender: FDA-Public Use
  Company Number: 2006117790

PATIENT
  Age: 83 Year
  Sex: Female
  Weight: 60.3284 kg

DRUGS (4)
  1. LYRICA [Suspect]
     Indication: NERVE COMPRESSION
     Dosage: 50 MG
     Dates: start: 20060924, end: 20060924
  2. OXYCODONE HCL [Concomitant]
  3. ANALGESICS (ANALGESICS) [Concomitant]
  4. ANTIHYPERTENSIVES (ANTIHYPERTENSIVES) [Concomitant]

REACTIONS (7)
  - DIZZINESS [None]
  - DRY MOUTH [None]
  - FATIGUE [None]
  - FEELING ABNORMAL [None]
  - GAIT DISTURBANCE [None]
  - INCREASED APPETITE [None]
  - PARAESTHESIA [None]
